FAERS Safety Report 10197058 (Version 3)
Quarter: 2015Q2

REPORT INFORMATION
  Report Type: Spontaneous
  Country: FR (occurrence: FR)
  Receive Date: 20140527
  Receipt Date: 20150626
  Transmission Date: 20150821
  Serious: Yes (Hospitalization)
  Sender: FDA-Public Use
  Company Number: FR-UCBSA-121737

PATIENT
  Age: 64 Year
  Sex: Male

DRUGS (9)
  1. KEPPRA [Suspect]
     Active Substance: LEVETIRACETAM
     Dosage: 500 MG, 2X/DAY (BID)
     Dates: start: 20140409
  2. EXFORGE [Concomitant]
     Active Substance: AMLODIPINE BESYLATE\VALSARTAN
  3. INEXIUM [Suspect]
     Active Substance: ESOMEPRAZOLE
     Dosage: DAILY DOSE: 40MG
     Dates: start: 20140422, end: 2014
  4. TEMERIT [Concomitant]
     Active Substance: NEBIVOLOL
  5. CRESTOR [Concomitant]
     Active Substance: ROSUVASTATIN CALCIUM
  6. MEDROL [Suspect]
     Active Substance: METHYLPREDNISOLONE
     Dosage: 1ST 2 DAYS: 100MG DAILY (THEN 50MG, DAILY)
     Dates: start: 20140420, end: 2014
  7. ALDACTAZINE [Concomitant]
     Active Substance: ALTHIAZIDE\SPIRONOLACTONE
  8. AUGMENTIN [Concomitant]
     Active Substance: AMOXICILLIN\CLAVULANATE POTASSIUM
     Dosage: 2 G, 3X/DAY (TID)
     Dates: start: 20140409, end: 20140417
  9. KARDEGIC [Concomitant]
     Active Substance: ASPIRIN LYSINE

REACTIONS (3)
  - Hepatocellular injury [Unknown]
  - Jaundice [Unknown]
  - Hepatitis cholestatic [Unknown]

NARRATIVE: CASE EVENT DATE: 20140424
